FAERS Safety Report 13551463 (Version 1)
Quarter: 2017Q2

REPORT INFORMATION
  Report Type: Spontaneous
  Country: DE (occurrence: DE)
  Receive Date: 20170516
  Receipt Date: 20170516
  Transmission Date: 20170830
  Serious: Yes (Other)
  Sender: FDA-Public Use
  Company Number: DE-TEVA-764824GER

PATIENT
  Age: 91 Year
  Sex: Female

DRUGS (1)
  1. DIAZEPAM-RATIOPHARM 5 MG TABLETTEN [Suspect]
     Active Substance: DIAZEPAM
     Dosage: 5 MILLIGRAM DAILY;
     Route: 048
     Dates: start: 201704, end: 201704

REACTIONS (6)
  - Speech disorder [Not Recovered/Not Resolved]
  - Cerebrovascular accident [Not Recovered/Not Resolved]
  - Blood pressure decreased [Not Recovered/Not Resolved]
  - Gait disturbance [Not Recovered/Not Resolved]
  - Overdose [Not Recovered/Not Resolved]
  - Movement disorder [Not Recovered/Not Resolved]

NARRATIVE: CASE EVENT DATE: 201704
